FAERS Safety Report 6381577-6 (Version None)
Quarter: 2009Q3

REPORT INFORMATION
  Report Type: 
  Country: None (occurrence: None)
  Receive Date: 20090925
  Receipt Date: 20090910
  Transmission Date: 20100115
  Serious: Yes (Other)
  Sender: FDA-Public Use
  Company Number: DSJ-2009-12271

PATIENT
  Age: 70 Year
  Sex: Male

DRUGS (2)
  1. OFLOCET AURICULAIRE (OFLOXACIN) (EAR DROPS) (OFLOXACIN) [Suspect]
     Indication: DRUG USE FOR UNKNOWN INDICATION
     Dosage: 3 MG, AURICULAR (OTTIC)
     Route: 001
     Dates: start: 20090826, end: 20090827
  2. INEXIUM (ESOMEPRAZOLE) (TABLET) (ESOMEPRAZOLE) [Concomitant]

REACTIONS (3)
  - ABDOMINAL PAIN UPPER [None]
  - DRUG DISPENSING ERROR [None]
  - DRUG PRESCRIBING ERROR [None]
